FAERS Safety Report 17017709 (Version 1)
Quarter: 2019Q4

REPORT INFORMATION
  Report Type: Report from Study
  Country: CA (occurrence: CA)
  Receive Date: 20191111
  Receipt Date: 20191111
  Transmission Date: 20200122
  Serious: Yes (Death)
  Sender: FDA-Public Use
  Company Number: CA-INCYTE CORPORATION-2013IN000451

PATIENT

DRUGS (3)
  1. JAKAVI [Suspect]
     Active Substance: RUXOLITINIB
     Indication: MYELOFIBROSIS
     Dosage: 10 MG, BID
     Route: 048
     Dates: start: 20121018
  2. GLYBURIDE W/METFORMIN [Concomitant]
     Active Substance: GLYBURIDE\METFORMIN
     Indication: DIABETES MELLITUS
     Dosage: UNK
     Route: 065
  3. JAKAVI [Suspect]
     Active Substance: RUXOLITINIB
     Dosage: 25 MG, BID
     Route: 048

REACTIONS (5)
  - Oral pain [Unknown]
  - Death [Fatal]
  - Fatigue [Unknown]
  - Gout [Unknown]
  - Feeling abnormal [Unknown]
